FAERS Safety Report 6751802-8 (Version None)
Quarter: 2010Q2

REPORT INFORMATION
  Report Type: 
  Country: None (occurrence: None)
  Receive Date: 20100528
  Receipt Date: 20100517
  Transmission Date: 20101027
  Serious: Yes (Hospitalization)
  Sender: FDA-Public Use
  Company Number: 7005123

PATIENT
  Age: 37 Year
  Sex: Female
  Weight: 105 kg

DRUGS (6)
  1. REBIF [Suspect]
     Indication: MULTIPLE SCLEROSIS
     Dosage: 44 MCG, 3 IN 1 WK, SUBCUTANEOUS
     Route: 058
     Dates: start: 20090706, end: 20100203
  2. BIRTH CONTROL PILLS (ORAL CONTRACEPTIVE NOS) [Suspect]
     Indication: GENITAL DISORDER FEMALE
     Dates: start: 20100301, end: 20100301
  3. BIRTH CONTROL PILLS (ORAL CONTRACEPTIVE NOS) [Suspect]
     Indication: GENITAL PAIN
     Dates: start: 20100301, end: 20100301
  4. LEXAPRO (ESCTALOPRAM OXALATE) [Concomitant]
  5. ARICEPT [Concomitant]
  6. PROVIGIL [Concomitant]

REACTIONS (5)
  - GENITAL DISORDER FEMALE [None]
  - GENITAL PAIN [None]
  - NEPHROLITHIASIS [None]
  - PULMONARY EMBOLISM [None]
  - RASH [None]
